FAERS Safety Report 10833672 (Version 1)
Quarter: 2015Q1

REPORT INFORMATION
  Report Type: Spontaneous
  Country: GB (occurrence: GB)
  Receive Date: 20150219
  Receipt Date: 20150219
  Transmission Date: 20150721
  Serious: Yes (Other)
  Sender: FDA-Public Use
  Company Number: GB-INCYTE CORPORATION-2015IN000616

PATIENT
  Age: 67 Year

DRUGS (1)
  1. JAKAFI [Suspect]
     Active Substance: RUXOLITINIB
     Indication: MYELOFIBROSIS
     Dosage: 5 MG, BID
     Route: 065

REACTIONS (8)
  - Platelet count decreased [Unknown]
  - Bladder neoplasm [Unknown]
  - Second primary malignancy [Unknown]
  - Dyspnoea exertional [Unknown]
  - Contusion [Unknown]
  - Haemorrhage [Unknown]
  - Renal impairment [Unknown]
  - Haematuria [Unknown]

NARRATIVE: CASE EVENT DATE: 201412
